FAERS Safety Report 10256725 (Version 4)
Quarter: 2015Q1

REPORT INFORMATION
  Report Type: Report from Study
  Country: HU (occurrence: HU)
  Receive Date: 20140624
  Receipt Date: 20150203
  Transmission Date: 20150720
  Serious: Yes (Death, Hospitalization, Disabling, Other)
  Sender: FDA-Public Use
  Company Number: HU-JNJFOC-20130909003

PATIENT
  Age: 38 Year
  Sex: Male
  Weight: 220 kg

DRUGS (10)
  1. RIVAROXABAN [Suspect]
     Active Substance: RIVAROXABAN
     Indication: THROMBOSIS PROPHYLAXIS
     Route: 048
     Dates: start: 20130508, end: 20130613
  2. HEPARIN FRACTION [Concomitant]
     Active Substance: HEPARIN SODIUM
     Route: 065
     Dates: start: 20130614, end: 20130617
  3. RIVAROXABAN [Suspect]
     Active Substance: RIVAROXABAN
     Indication: DEEP VEIN THROMBOSIS
     Route: 048
     Dates: start: 20130416, end: 20130507
  4. RIVAROXABAN [Suspect]
     Active Substance: RIVAROXABAN
     Indication: THROMBOSIS PROPHYLAXIS
     Route: 048
     Dates: start: 20130416, end: 20130507
  5. CONTRAMAL [Concomitant]
     Active Substance: TRAMADOL HYDROCHLORIDE
     Indication: PAIN IN EXTREMITY
     Route: 065
     Dates: start: 20130416, end: 20130425
  6. CLINDAMYCIN [Concomitant]
     Active Substance: CLINDAMYCIN\CLINDAMYCIN PHOSPHATE
     Indication: ERYSIPELAS
     Route: 065
     Dates: start: 20130418, end: 20130425
  7. RIVAROXABAN [Suspect]
     Active Substance: RIVAROXABAN
     Indication: DEEP VEIN THROMBOSIS
     Route: 048
     Dates: start: 20130508, end: 20130613
  8. TRITACE [Concomitant]
     Active Substance: RAMIPRIL
     Route: 065
     Dates: start: 20130418, end: 20130617
  9. TRITACE [Concomitant]
     Active Substance: RAMIPRIL
     Route: 065
     Dates: start: 20130416, end: 20130417
  10. DALACIN [Concomitant]
     Active Substance: CLINDAMYCIN\CLINDAMYCIN PHOSPHATE
     Indication: ERYSIPELAS
     Route: 065
     Dates: start: 20130418, end: 20130425

REACTIONS (13)
  - Muscular weakness [Not Recovered/Not Resolved]
  - Erysipelas [Recovered/Resolved]
  - Septic shock [Fatal]
  - Skin haemorrhage [Recovered/Resolved]
  - Dysuria [Not Recovered/Not Resolved]
  - Cardiovascular insufficiency [Fatal]
  - Furuncle [Unknown]
  - Muscular weakness [Recovered/Resolved]
  - Decubitus ulcer [Not Recovered/Not Resolved]
  - Renal failure [Fatal]
  - Skin haemorrhage [Recovered/Resolved]
  - Respiratory failure [Fatal]
  - Skin ulcer [Not Recovered/Not Resolved]

NARRATIVE: CASE EVENT DATE: 20130417
